FAERS Safety Report 4415167-9 (Version None)
Quarter: 2004Q3

REPORT INFORMATION
  Report Type: 
  Country: None (occurrence: None)
  Receive Date: 20040804
  Receipt Date: 20040728
  Transmission Date: 20050211
  Serious: Yes (Disabling, Other)
  Sender: FDA-Public Use
  Company Number: US-MERCK-0407USA02456

PATIENT
  Sex: Female

DRUGS (15)
  1. ULTRACET [Concomitant]
     Route: 065
  2. ALBUTEROL [Concomitant]
     Route: 065
  3. FOSAMAX [Suspect]
     Indication: OSTEOPOROSIS
     Route: 048
     Dates: start: 19980101
  4. FOSAMAX [Suspect]
     Route: 048
     Dates: start: 20020101, end: 20020101
  5. BOTOX [Concomitant]
     Route: 065
  6. COREG [Concomitant]
     Route: 065
  7. CARDIZEM [Concomitant]
     Route: 065
  8. MOTRIN [Concomitant]
     Route: 065
  9. SKELAXIN [Concomitant]
     Route: 065
  10. TOPROL-XL [Concomitant]
     Route: 065
  11. LOPRESSOR [Concomitant]
     Route: 065
  12. SINGULAIR [Concomitant]
     Route: 048
  13. EVISTA [Concomitant]
     Route: 065
  14. NOLVADEX [Suspect]
     Route: 065
  15. FARESTON [Suspect]
     Route: 065

REACTIONS (12)
  - BACK PAIN [None]
  - BONE DENSITY DECREASED [None]
  - CARDIAC DISORDER [None]
  - CHEST PAIN [None]
  - DIFFICULTY IN WALKING [None]
  - DYSPNOEA [None]
  - GAIT DISTURBANCE [None]
  - GASTROINTESTINAL DISORDER [None]
  - NECK PAIN [None]
  - PAIN IN JAW [None]
  - PALPITATIONS [None]
  - SPINAL CORD DISORDER [None]
